FAERS Safety Report 15320511 (Version 1)
Quarter: 2018Q3

REPORT INFORMATION
  Report Type: Spontaneous
  Country: US (occurrence: US)
  Receive Date: 20180821
  Receipt Date: 20180821
  Transmission Date: 20181010
  Serious: No
  Sender: FDA-Public Use
  Company Number: None

PATIENT
  Age: 74 Year
  Sex: Female
  Weight: 64.35 kg

DRUGS (15)
  1. SERTRALINE [Concomitant]
     Active Substance: SERTRALINE HYDROCHLORIDE
  2. OCUFLOX [Concomitant]
     Active Substance: OFLOXACIN
  3. AZILECT [Concomitant]
     Active Substance: RASAGILINE MESYLATE
  4. ISOSORBIDE MONOMITRATE [Concomitant]
  5. VAGIFEM [Concomitant]
     Active Substance: ESTRADIOL
  6. AMLODIPINE [Concomitant]
     Active Substance: AMLODIPINE BESYLATE
  7. EFFIENT [Concomitant]
     Active Substance: PRASUGREL HYDROCHLORIDE
  8. TASIGNA [Suspect]
     Active Substance: NILOTINIB
     Indication: CHRONIC MYELOID LEUKAEMIA
     Route: 048
     Dates: start: 20170622, end: 20180816
  9. ALPRAZOLAM ER [Concomitant]
     Active Substance: ALPRAZOLAM
  10. TOPROL XL [Concomitant]
     Active Substance: METOPROLOL SUCCINATE
  11. PRAVASTATIN. [Concomitant]
     Active Substance: PRAVASTATIN
  12. DUREZOL [Concomitant]
     Active Substance: DIFLUPREDNATE
  13. PROLENSA [Concomitant]
     Active Substance: BROMFENAC SODIUM
  14. CLARITIN [Concomitant]
     Active Substance: LORATADINE
  15. RASAGILINE. [Concomitant]
     Active Substance: RASAGILINE

REACTIONS (1)
  - Hepatic enzyme increased [None]

NARRATIVE: CASE EVENT DATE: 20180816
